FAERS Safety Report 7986339-1 (Version None)
Quarter: 2011Q4

REPORT INFORMATION
  Report Type: 
  Country: None (occurrence: None)
  Receive Date: 20111216
  Receipt Date: 20110714
  Transmission Date: 20120403
  Serious: No
  Sender: FDA-Public Use
  Company Number: US-BRISTOL-MYERS SQUIBB COMPANY-15896087

PATIENT
  Sex: Female

DRUGS (3)
  1. ABILIFY [Suspect]
     Dosage: 1 DF:1-2 MG TAKING 4YEARS AGO
  2. MIRAPEX [Suspect]
  3. PROZAC [Suspect]

REACTIONS (2)
  - DYSTONIA [None]
  - STOMATITIS [None]
